FAERS Safety Report 4907122-7 (Version None)
Quarter: 2006Q1

REPORT INFORMATION
  Report Type: 
  Country: None (occurrence: None)
  Receive Date: 20060206
  Receipt Date: 20060120
  Transmission Date: 20060701
  Serious: Yes (Other)
  Sender: FDA-Public Use
  Company Number: 220577

PATIENT

DRUGS (1)
  1. AVASTIN (BEVACIZUMAB) PWDR + SOLVENT, INFUSION SOLN, 100MG [Suspect]

REACTIONS (1)
  - PERICARDIAL EFFUSION [None]
